FAERS Safety Report 11103107 (Version 2)
Quarter: 2015Q2

REPORT INFORMATION
  Report Type: Spontaneous
  Country: US (occurrence: US)
  Receive Date: 20150511
  Receipt Date: 20150611
  Transmission Date: 20150821
  Serious: Yes (Other)
  Sender: FDA-Public Use
  Company Number: US-PFIZER INC-2015157119

PATIENT
  Age: 84 Year
  Sex: Male
  Weight: 73.5 kg

DRUGS (8)
  1. CRESTOR [Concomitant]
     Active Substance: ROSUVASTATIN CALCIUM
     Dosage: UNK
  2. TRAMADOL [Concomitant]
     Active Substance: TRAMADOL
     Dosage: UNK
  3. SUTENT [Suspect]
     Active Substance: SUNITINIB MALATE
     Dosage: 50 MG, UNK
     Dates: start: 201403
  4. SUTENT [Suspect]
     Active Substance: SUNITINIB MALATE
     Dosage: 25 MG, DAILY (28 DAYS ON AND 1 WEEK OFF)
     Dates: start: 20150406
  5. VITAMIN D /00107901/ [Concomitant]
     Active Substance: ERGOCALCIFEROL
     Dosage: UNK
  6. HYDROCODONE/APAP [Concomitant]
     Active Substance: ACETAMINOPHEN\HYDROCODONE
     Dosage: UNK
  7. FLOMAX [Concomitant]
     Active Substance: TAMSULOSIN HYDROCHLORIDE
     Dosage: UNK
  8. CLARITIN [Concomitant]
     Active Substance: LORATADINE
     Dosage: UNK

REACTIONS (12)
  - Constipation [Unknown]
  - Abdominal pain [Unknown]
  - Back pain [Unknown]
  - Decreased appetite [Unknown]
  - Dysgeusia [Unknown]
  - Arthralgia [Unknown]
  - Impaired healing [Recovering/Resolving]
  - Joint swelling [Unknown]
  - Seizure [Unknown]
  - Pain [Unknown]
  - Weight decreased [Unknown]
  - Epistaxis [Unknown]
